FAERS Safety Report 18497884 (Version 1)
Quarter: 2020Q4

REPORT INFORMATION
  Report Type: Spontaneous
  Country: US (occurrence: US)
  Receive Date: 20201112
  Receipt Date: 20201112
  Transmission Date: 20210114
  Serious: Yes (Other)
  Sender: FDA-Public Use
  Company Number: US-BAUSCH-BL-2020-032457

PATIENT
  Sex: Female

DRUGS (1)
  1. APRISO [Suspect]
     Active Substance: MESALAMINE
     Indication: COLITIS ULCERATIVE
     Dosage: FOR THREE YEARS
     Route: 065
     Dates: start: 2017, end: 2020

REACTIONS (7)
  - Condition aggravated [Not Recovered/Not Resolved]
  - Insurance issue [Unknown]
  - Ear swelling [Not Recovered/Not Resolved]
  - Therapy interrupted [Unknown]
  - Colitis ulcerative [Not Recovered/Not Resolved]
  - Impaired work ability [Not Recovered/Not Resolved]
  - Pain [Not Recovered/Not Resolved]

NARRATIVE: CASE EVENT DATE: 2020
